FAERS Safety Report 6328602-6 (Version None)
Quarter: 2009Q3

REPORT INFORMATION
  Report Type: 
  Country: None (occurrence: None)
  Receive Date: 20090805
  Receipt Date: 20090805
  Transmission Date: 20100115
  Serious: No
  Sender: FDA-Public Use
  Company Number: None

PATIENT

DRUGS (2)
  1. HEPARIN SODIUM USP 1,000 UNITS/ML 30ML APP PHARMACEUTICALS [Suspect]
     Indication: CARDIAC OPERATION
     Dosage: 30ML ONE TIME IV BOLUS
     Route: 040
     Dates: start: 20090804, end: 20090804
  2. HEPARIN SODIUM USP 1,000 UNITS/ML 10ML APP PHARMACEUTICALS [Suspect]
     Indication: CARDIAC OPERATION
     Dosage: 10ML ONE TIME IV BOLUS
     Route: 040
     Dates: start: 20090804, end: 20090804

REACTIONS (1)
  - PRODUCT MEASURED POTENCY ISSUE [None]
